FAERS Safety Report 12889746 (Version 7)
Quarter: 2017Q2

REPORT INFORMATION
  Report Type: Report from Study
  Country: US (occurrence: US)
  Receive Date: 20161027
  Receipt Date: 20170628
  Transmission Date: 20170830
  Serious: Yes (Hospitalization, Other)
  Sender: FDA-Public Use
  Company Number: US-MALLINCKRODT-T201605150

PATIENT
  Age: 72 Year
  Sex: Female

DRUGS (25)
  1. LEVOTHYROXINE. [Concomitant]
     Active Substance: LEVOTHYROXINE
     Indication: THYROID DISORDER
     Dosage: 75 MCG ONCE A DAY
  2. ASPIRIN. [Concomitant]
     Active Substance: ASPIRIN
     Indication: PRODUCT USED FOR UNKNOWN INDICATION
     Dosage: 80 MG ONCE A DAY
  3. MULTIVITAMIN [Concomitant]
     Active Substance: VITAMINS
     Indication: PRODUCT USED FOR UNKNOWN INDICATION
     Dosage: ONCE IN A DAY
  4. SPIRIVA [Concomitant]
     Active Substance: TIOTROPIUM BROMIDE MONOHYDRATE
     Indication: CHRONIC OBSTRUCTIVE PULMONARY DISEASE
     Dosage: 2.5 MG ONE IN THE MORNING AND ONE AFTER DINNER
  5. ADVAIR HFA [Concomitant]
     Active Substance: FLUTICASONE PROPIONATE\SALMETEROL XINAFOATE
     Indication: CHRONIC OBSTRUCTIVE PULMONARY DISEASE
     Dosage: 250/50 TWICE DAILY
  6. BUPROPION HCL [Concomitant]
     Active Substance: BUPROPION HYDROCHLORIDE
     Indication: SMOKING CESSATION THERAPY
     Dosage: 300MG ONCE A DAY IN THE MORNING
  7. PRAMIPEXOLE. [Concomitant]
     Active Substance: PRAMIPEXOLE
     Dosage: 0.5MG ONCE AT BEDTIME
  8. VITAMIN B12 [Concomitant]
     Active Substance: CYANOCOBALAMIN
     Indication: VITAMIN B12 DEFICIENCY
     Dosage: 1500MCG ONCE A DAY
  9. EZETIMIBE. [Concomitant]
     Active Substance: EZETIMIBE
     Indication: PRODUCT USED FOR UNKNOWN INDICATION
     Dosage: 10 MG ONCE IN THE MORNING
  10. FUROSEMIDE. [Concomitant]
     Active Substance: FUROSEMIDE
     Indication: FLUID RETENTION
     Dosage: 20 MG ONCE A DAY
  11. BIOTIN [Concomitant]
     Active Substance: BIOTIN
     Indication: PRODUCT USED FOR UNKNOWN INDICATION
     Dosage: 1000 MCG THREE TIMES A DAY
  12. VITAMIN D3 [Concomitant]
     Active Substance: CHOLECALCIFEROL
     Indication: PRODUCT USED FOR UNKNOWN INDICATION
     Dosage: 400 IU, 5 TABLETS IN THE MORNING (DAILY DOSE 2000IU)
  13. REPOSITORY CORTICOTROPIN INJECTION [Suspect]
     Active Substance: CORTICOTROPIN
     Dosage: 80U/1ML ONCE WEEKLY
     Route: 058
     Dates: start: 20161011
  14. REPOSITORY CORTICOTROPIN INJECTION [Suspect]
     Active Substance: CORTICOTROPIN
     Dosage: 80U/1ML TWICE PER WEEK
     Route: 058
  15. PREDNISONE. [Concomitant]
     Active Substance: PREDNISONE
     Indication: RHEUMATOID ARTHRITIS
     Dosage: 5MG TABLETS ONE AND HALF ONCE A DAY
  16. FOLIC ACID GENERIC [Concomitant]
     Indication: RHEUMATOID ARTHRITIS
     Dosage: 800 MCG ONE THREE TIMES A DAY
  17. PROBIOTIC [Concomitant]
     Active Substance: PROBIOTICS NOS
     Indication: PRODUCT USED FOR UNKNOWN INDICATION
     Dosage: ONCE IN THE MORNING
  18. LISINOPRIL. [Concomitant]
     Active Substance: LISINOPRIL
     Indication: HYPERTENSION
     Dosage: 20/12.5 MG, ONCE A DAY
  19. CALCIUM [Concomitant]
     Active Substance: CALCIUM
     Indication: OSTEOPOROSIS
     Dosage: 1200MG, ONE THREE TIMES A DAY
  20. REPOSITORY CORTICOTROPIN INJECTION [Suspect]
     Active Substance: CORTICOTROPIN
     Dosage: 80 UNITS / 1 ML, 1 TIME WEEKLY, TUESDAY
     Route: 058
  21. METHOTREXATE. [Concomitant]
     Active Substance: METHOTREXATE
     Indication: RHEUMATOID ARTHRITIS
     Dosage: UNK
     Dates: end: 201609
  22. METHOTREXATE. [Concomitant]
     Active Substance: METHOTREXATE
     Dosage: 2.5 MG 6 TABLETS IN A WEEK
  23. COENZYME Q10 [Concomitant]
     Active Substance: UBIDECARENONE
     Indication: CARDIAC DISORDER
     Dosage: 200MG ONCE A DAY
  24. REPOSITORY CORTICOTROPIN INJECTION [Suspect]
     Active Substance: CORTICOTROPIN
     Indication: RHEUMATOID ARTHRITIS
     Dosage: 80U/1ML ONCE WEEKLY
     Route: 058
     Dates: start: 20131001
  25. PROAIR HFA [Concomitant]
     Active Substance: ALBUTEROL SULFATE
     Indication: CHRONIC OBSTRUCTIVE PULMONARY DISEASE
     Dosage: 90 MCG AS NEEDED

REACTIONS (15)
  - Localised infection [Recovering/Resolving]
  - Pain in extremity [Not Recovered/Not Resolved]
  - Impaired healing [Not Recovered/Not Resolved]
  - Abasia [Not Recovered/Not Resolved]
  - Mobility decreased [Not Recovered/Not Resolved]
  - Confusional state [Unknown]
  - Ligament sprain [Not Recovered/Not Resolved]
  - Cellulitis [Recovering/Resolving]
  - Musculoskeletal stiffness [Not Recovered/Not Resolved]
  - Wound [Recovering/Resolving]
  - Drug effect decreased [Recovering/Resolving]
  - Hypersensitivity [Recovering/Resolving]
  - Application site burn [Recovering/Resolving]
  - Condition aggravated [Not Recovered/Not Resolved]
  - Drug ineffective [Not Recovered/Not Resolved]

NARRATIVE: CASE EVENT DATE: 2016
